FAERS Safety Report 7391415-0 (Version None)
Quarter: 2011Q2

REPORT INFORMATION
  Report Type: 
  Country: None (occurrence: None)
  Receive Date: 20110404
  Receipt Date: 20110322
  Transmission Date: 20111010
  Serious: Yes (Life-Threatening, Hospitalization)
  Sender: FDA-Public Use
  Company Number: FR-JNJFOC-20110310445

PATIENT
  Sex: Female

DRUGS (2)
  1. ACTIFED [Suspect]
     Indication: NASOPHARYNGITIS
     Route: 048
  2. ACTIFED [Suspect]
     Indication: NASOPHARYNGITIS
     Route: 048

REACTIONS (1)
  - ANAPHYLACTIC SHOCK [None]
